FAERS Safety Report 5438325-3 (Version None)
Quarter: 2007Q3

REPORT INFORMATION
  Report Type: 
  Country: None (occurrence: None)
  Receive Date: 20070831
  Receipt Date: 20070821
  Transmission Date: 20080115
  Serious: No
  Sender: FDA-Public Use
  Company Number: A0672638A

PATIENT
  Age: 46 Year
  Sex: Female

DRUGS (1)
  1. ALLI [Suspect]
     Dates: start: 20070614, end: 20070816

REACTIONS (8)
  - CHEST PAIN [None]
  - HOT FLUSH [None]
  - HYPERHIDROSIS [None]
  - MENSTRUATION IRREGULAR [None]
  - MIGRAINE [None]
  - ONYCHOCLASIS [None]
  - PALPITATIONS [None]
  - PHOTOPSIA [None]
